FAERS Safety Report 6477931-4 (Version None)
Quarter: 2009Q4

REPORT INFORMATION
  Report Type: 
  Country: None (occurrence: None)
  Receive Date: 20091207
  Receipt Date: 20091203
  Transmission Date: 20100525
  Serious: Yes (Other)
  Sender: FDA-Public Use
  Company Number: A0817358A

PATIENT
  Sex: Female
  Weight: 69.5 kg

DRUGS (2)
  1. AVAMYS [Suspect]
     Indication: SINUSITIS
     Dosage: 2PUFF PER DAY
     Route: 045
     Dates: start: 20090917, end: 20091021
  2. SALINE NASAL [Concomitant]

REACTIONS (2)
  - AGEUSIA [None]
  - ANOSMIA [None]
